FAERS Safety Report 5015671-9 (Version None)
Quarter: 2006Q2

REPORT INFORMATION
  Report Type: 
  Country: None (occurrence: None)
  Receive Date: 20060525
  Receipt Date: 20060515
  Transmission Date: 20061013
  Serious: Yes (Death)
  Sender: FDA-Public Use
  Company Number: 2006BH010040

PATIENT

DRUGS (2)
  1. DOPAMINE HYDROCHLORIDE [Suspect]
     Dosage: IV
     Route: 042
  2. NEO-SYNEPHRINE [Suspect]
     Dosage: IV
     Route: 042

REACTIONS (2)
  - DEVICE MALFUNCTION [None]
  - DRUG DOSE OMISSION [None]
